FAERS Safety Report 6148040-9 (Version None)
Quarter: 2009Q2

REPORT INFORMATION
  Report Type: 
  Country: None (occurrence: None)
  Receive Date: 20090408
  Receipt Date: 20090401
  Transmission Date: 20091009
  Serious: Yes (Death, Life-Threatening, Disabling)
  Sender: FDA-Public Use
  Company Number: A0687531A

PATIENT
  Sex: Male
  Weight: 3 kg

DRUGS (4)
  1. PAXIL [Suspect]
     Indication: DEPRESSION
     Dates: start: 20030101, end: 20070101
  2. PAXIL CR [Suspect]
     Indication: DEPRESSION
     Dates: start: 20030101, end: 20070101
  3. VITAMIN TAB [Concomitant]
  4. IRON [Concomitant]

REACTIONS (9)
  - ATRIAL SEPTAL DEFECT [None]
  - DILATATION VENTRICULAR [None]
  - DISSEMINATED INTRAVASCULAR COAGULATION [None]
  - DRUG EXPOSURE DURING PREGNANCY [None]
  - EBSTEIN'S ANOMALY [None]
  - MULTI-ORGAN FAILURE [None]
  - PATENT DUCTUS ARTERIOSUS [None]
  - PREMATURE BABY [None]
  - PSEUDOMONAL SEPSIS [None]
